FAERS Safety Report 11148452 (Version 1)
Quarter: 2015Q2

REPORT INFORMATION
  Report Type: Spontaneous
  Country: US (occurrence: None)
  Receive Date: 20150528
  Receipt Date: 20150528
  Transmission Date: 20150821
  Serious: Yes (Other)
  Sender: FDA-Public Use
  Company Number: None

PATIENT
  Age: 31 Year
  Sex: Female

DRUGS (9)
  1. B6 COMPLEX [Concomitant]
  2. VIT. D [Concomitant]
  3. PROPRANOLOL HYDROCHLORIDE ER [Suspect]
     Active Substance: PROPRANOLOL HYDROCHLORIDE
     Indication: HYPERTHYROIDISM
     Dosage: BY MOUTH, ONCE AT NIGHT
     Dates: start: 20150425, end: 20150426
  4. BOIRON^S SEDALIA [Concomitant]
  5. KING BIO NATURAL MEDICINES STRESS CONTROL [Concomitant]
  6. PROPRANOLOL HYDROCHLORIDE ER [Suspect]
     Active Substance: PROPRANOLOL HYDROCHLORIDE
     Indication: PALPITATIONS
     Dosage: BY MOUTH, ONCE AT NIGHT
     Dates: start: 20150425, end: 20150426
  7. PRENATAL [Concomitant]
     Active Substance: VITAMINS
  8. BACH^S RESCUE REMEDY [Concomitant]
  9. PROPRANOLOL HYDROCHLORIDE ER [Suspect]
     Active Substance: PROPRANOLOL HYDROCHLORIDE
     Indication: TACHYCARDIA
     Dosage: BY MOUTH, ONCE AT NIGHT
     Dates: start: 20150425, end: 20150426

REACTIONS (3)
  - Chest pain [None]
  - Muscle fatigue [None]
  - Feeling abnormal [None]

NARRATIVE: CASE EVENT DATE: 20150426
